FAERS Safety Report 6348355-5 (Version None)
Quarter: 2009Q3

REPORT INFORMATION
  Report Type: 
  Country: None (occurrence: None)
  Receive Date: 20090908
  Receipt Date: 20090824
  Transmission Date: 20100115
  Serious: Yes (Life-Threatening)
  Sender: FDA-Public Use
  Company Number: 2009MB000061

PATIENT
  Age: 46 Year
  Sex: Male

DRUGS (7)
  1. CEPHALEXIN [Suspect]
     Indication: DRUG USE FOR UNKNOWN INDICATION
     Dosage: 14 DF;X1;PO
     Route: 048
  2. DIPHENHYDRAMINE HCL [Concomitant]
  3. HALOPERIDOL [Concomitant]
  4. DOLGESIC /000200001/ [Concomitant]
  5. CYCLOBENZAPRINE [Concomitant]
  6. NAPROXEN [Concomitant]
  7. CHLORZOXAZONE [Concomitant]

REACTIONS (3)
  - CYANOSIS [None]
  - METHAEMOGLOBINAEMIA [None]
  - OXYGEN SATURATION DECREASED [None]
